FAERS Safety Report 5213091-5 (Version None)
Quarter: 2007Q1

REPORT INFORMATION
  Report Type: 
  Country: None (occurrence: None)
  Receive Date: 20070116
  Receipt Date: 20070108
  Transmission Date: 20070707
  Serious: Yes (Other)
  Sender: FDA-Public Use
  Company Number: S07-USA-00081-01

PATIENT
  Age: 47 Year
  Sex: Male
  Weight: 143.7903 kg

DRUGS (14)
  1. LEXAPRO [Suspect]
     Dosage: 40 MG QD PO
     Route: 048
  2. LAMICTAL [Suspect]
     Indication: CONVULSION
     Dosage: 100 MG BID
  3. LOVENOX [Suspect]
  4. SYNTHROID [Suspect]
  5. PENTOXIFYLLINE [Suspect]
  6. FOSAMAX [Suspect]
  7. NEXIUM [Suspect]
  8. GABAPENTIN [Suspect]
  9. FUROSEMIDE [Suspect]
  10. TRAZODONE HCL [Suspect]
  11. ASPIRIN [Suspect]
  12. CALCIUM [Suspect]
  13. FOLIC ACID [Suspect]
  14. VITAMIN D [Suspect]

REACTIONS (4)
  - ANTICONVULSANT DRUG LEVEL BELOW THERAPEUTIC [None]
  - CONVULSION [None]
  - DISEASE RECURRENCE [None]
  - DRUG INTERACTION [None]
